FAERS Safety Report 20107445 (Version 1)
Quarter: 2021Q4

REPORT INFORMATION
  Report Type: Spontaneous
  Country: FR (occurrence: FR)
  Receive Date: 20211124
  Receipt Date: 20211124
  Transmission Date: 20220303
  Serious: Yes (Hospitalization, Other)
  Sender: FDA-Public Use
  Company Number: None

PATIENT
  Age: 27 Year
  Sex: Male
  Weight: 48.5 kg

DRUGS (3)
  1. HEPARIN CALCIUM [Suspect]
     Active Substance: HEPARIN CALCIUM
     Indication: Deep vein thrombosis
     Dosage: 20000 IU, DAILY
     Route: 058
     Dates: start: 20211007
  2. HEPARIN CALCIUM [Suspect]
     Active Substance: HEPARIN CALCIUM
     Dosage: UNK UNK, REGULARLY INCREASED UNTIL REACHING 65,000 IU/D SUBCUTANEOUSLY ON 17/10/2021
     Route: 058
     Dates: start: 20211008, end: 20211020
  3. LOVENOX [Suspect]
     Active Substance: ENOXAPARIN SODIUM
     Indication: Embolism
     Dosage: 4000 IU/D
     Route: 058
     Dates: start: 20211005

REACTIONS (2)
  - Acute respiratory distress syndrome [Unknown]
  - Heparin-induced thrombocytopenia [Recovered/Resolved]

NARRATIVE: CASE EVENT DATE: 20211016
